FAERS Safety Report 4541004-8 (Version None)
Quarter: 2004Q4

REPORT INFORMATION
  Report Type: 
  Country: None (occurrence: None)
  Receive Date: 20041228
  Receipt Date: 20041206
  Transmission Date: 20050328
  Serious: No
  Sender: FDA-Public Use
  Company Number: 2004UW13131

PATIENT
  Age: 79 Year
  Sex: Male

DRUGS (2)
  1. CRESTOR [Suspect]
     Indication: HYPERCHOLESTEROLAEMIA
     Dosage: 10 MG QD PO
     Route: 048
     Dates: start: 20040401, end: 20040101
  2. WARFARIN SODIUM [Concomitant]

REACTIONS (4)
  - CATARACT OPERATION [None]
  - MACULAR DEGENERATION [None]
  - RETINAL DETACHMENT [None]
  - VITREOUS HAEMORRHAGE [None]
